FAERS Safety Report 4576258-5 (Version None)
Quarter: 2005Q1

REPORT INFORMATION
  Report Type: 
  Country: None (occurrence: None)
  Receive Date: 20050119
  Receipt Date: 20041111
  Transmission Date: 20050727
  Serious: Yes (Death)
  Sender: FDA-Public Use
  Company Number: A03200403829

PATIENT
  Age: 75 Year
  Sex: Male

DRUGS (1)
  1. PLAVIX [Suspect]
     Indication: STENT PLACEMENT
     Dosage: 300 MG ONCE - ORAL
     Route: 048
     Dates: start: 20041105, end: 20041105

REACTIONS (1)
  - POST PROCEDURAL HAEMORRHAGE [None]
